FAERS Safety Report 4928828-X (Version None)
Quarter: 2006Q1

REPORT INFORMATION
  Report Type: 
  Country: None (occurrence: None)
  Receive Date: 20060224
  Receipt Date: 20060208
  Transmission Date: 20060701
  Serious: Yes (Death)
  Sender: FDA-Public Use
  Company Number: S06-UKI-00626-01

PATIENT
  Age: 48 Year
  Sex: Male

DRUGS (5)
  1. CIPRALEX (ESCITALOPRAM) [Suspect]
     Indication: DEPRESSION
     Dosage: 10 MG QD PO
     Route: 048
     Dates: start: 20050726
  2. CO-PHENOTROPE [Concomitant]
  3. TRAMADOL HCL [Concomitant]
  4. PANTOPRAZOLE [Concomitant]
  5. RANITIDINE [Concomitant]

REACTIONS (1)
  - COMPLETED SUICIDE [None]
